FAERS Safety Report 5411195-5 (Version None)
Quarter: 2007Q3

REPORT INFORMATION
  Report Type: 
  Country: None (occurrence: None)
  Receive Date: 20070810
  Receipt Date: 20070809
  Transmission Date: 20080115
  Serious: Yes (Death)
  Sender: FDA-Public Use
  Company Number: A0669251A

PATIENT
  Age: 78 Year
  Sex: Male
  Weight: 105 kg

DRUGS (3)
  1. SERETIDE [Suspect]
     Indication: CHRONIC OBSTRUCTIVE PULMONARY DISEASE
     Route: 055
     Dates: start: 20060801, end: 20070721
  2. METICORTEN [Concomitant]
     Dates: start: 20050101, end: 20070721
  3. METFORMIN HCL [Concomitant]
     Dates: start: 20070101, end: 20070721

REACTIONS (1)
  - PULMONARY HAEMORRHAGE [None]
